FAERS Safety Report 5080103-1 (Version None)
Quarter: 2006Q3

REPORT INFORMATION
  Report Type: 
  Country: None (occurrence: None)
  Receive Date: 20060809
  Receipt Date: 20060803
  Transmission Date: 20061208
  Serious: Yes (Other)
  Sender: FDA-Public Use
  Company Number: THQ2006A00396

PATIENT
  Age: 65 Year
  Sex: Male

DRUGS (11)
  1. ACTOS [Suspect]
     Indication: DIABETES MELLITUS NON-INSULIN-DEPENDENT
     Dosage: 15 MG (15 MG, 1 IN 1 D) PER ORAL
     Route: 048
     Dates: start: 20060125, end: 20060308
  2. FELODIPINE [Suspect]
  3. BEZAFIBRATE [Suspect]
  4. OMEPRAZOLE [Suspect]
  5. AMITRIPTYLINE HCL [Suspect]
  6. GLICLAZIDE [Suspect]
  7. METFORMIN [Suspect]
  8. QUININE SULFATE [Suspect]
  9. BACLOFEN [Suspect]
  10. INIBACE (CILAZAPRIL) [Suspect]
  11. ASPIRIN [Suspect]

REACTIONS (3)
  - BLOOD PRESSURE FLUCTUATION [None]
  - DRUG INTERACTION [None]
  - HYPERTENSION [None]
